FAERS Safety Report 23873100 (Version 1)
Quarter: 2024Q2

REPORT INFORMATION
  Report Type: Report from Study
  Country: CN (occurrence: CN)
  Receive Date: 20240520
  Receipt Date: 20240520
  Transmission Date: 20240716
  Serious: Yes (Death, Hospitalization, Other)
  Sender: FDA-Public Use
  Company Number: CN-SA-SAC20240517000963

PATIENT
  Age: 61 Year
  Sex: Male

DRUGS (9)
  1. DOCETAXEL [Suspect]
     Active Substance: DOCETAXEL\DOCETAXEL ANHYDROUS
     Indication: Non-small cell lung cancer metastatic
     Dosage: 123 MG 1X
     Dates: start: 20160312, end: 20160312
  2. INSULIN HUMAN [Concomitant]
     Active Substance: INSULIN HUMAN
  3. MORPHINE [Concomitant]
     Active Substance: MORPHINE
  4. MAGNEVIST [Concomitant]
     Active Substance: GADOPENTETATE DIMEGLUMINE
  5. DEXAMETHASONE [Concomitant]
     Active Substance: DEXAMETHASONE
  6. OMEPRAZOLE [Concomitant]
     Active Substance: DONEPEZIL HYDROCHLORIDE\OMEPRAZOLE\OMEPRAZOLE MAGNESIUM
  7. TROPISETRON [Concomitant]
     Active Substance: TROPISETRON
  8. MAGNEVIST [Concomitant]
     Active Substance: GADOPENTETATE DIMEGLUMINE
  9. METHYLENE BLUE [Concomitant]
     Active Substance: METHYLENE BLUE

REACTIONS (1)
  - Circulatory collapse [Fatal]

NARRATIVE: CASE EVENT DATE: 20160320
